FAERS Safety Report 8018873-2 (Version None)
Quarter: 2012Q1

REPORT INFORMATION
  Report Type: 
  Country: None (occurrence: None)
  Receive Date: 20120103
  Receipt Date: 20111230
  Transmission Date: 20120608
  Serious: Yes (Other)
  Sender: FDA-Public Use
  Company Number: IT-PFIZER INC-2012000193

PATIENT
  Age: 47 Year
  Sex: Female

DRUGS (2)
  1. LYRICA [Suspect]
     Indication: NECK PAIN
     Dosage: 1 DOSAGE UNIT, DAILY
     Route: 048
     Dates: start: 20111222, end: 20111222
  2. BETAMETHASONE SODIUM PHOSPHATE [Suspect]
     Indication: NECK PAIN
     Dosage: 1 DOSAGE UNIT, DAILY
     Route: 048
     Dates: start: 20111222, end: 20111222

REACTIONS (3)
  - ASTHENIA [None]
  - TACHYPNOEA [None]
  - TREMOR [None]
